FAERS Safety Report 8619084-X (Version None)
Quarter: 2012Q3

REPORT INFORMATION
  Report Type: 
  Country: None (occurrence: None)
  Receive Date: 20120824
  Receipt Date: 20120821
  Transmission Date: 20120928
  Serious: Yes (Hospitalization)
  Sender: FDA-Public Use
  Company Number: PHHY2012DE072389

PATIENT
  Age: 9 Year
  Sex: Male
  Weight: 40 kg

DRUGS (3)
  1. RISPERIDONE [Suspect]
     Indication: ATTENTION DEFICIT/HYPERACTIVITY DISORDER
     Dosage: 0.5 MG, QD
     Route: 048
     Dates: start: 20101021, end: 20120211
  2. METHYLPHENIDATE [Suspect]
     Indication: ATTENTION DEFICIT/HYPERACTIVITY DISORDER
     Dosage: 30 MG, QD
     Route: 048
     Dates: end: 20120213
  3. ATOMOXETINE HCL [Suspect]
     Indication: ATTENTION DEFICIT/HYPERACTIVITY DISORDER
     Dosage: 20 MG, QD
     Route: 048
     Dates: start: 20100203, end: 20120206

REACTIONS (6)
  - SENSATION OF FOREIGN BODY [None]
  - BLOOD PRESSURE INCREASED [None]
  - TACHYCARDIA [None]
  - TIC [None]
  - WEIGHT DECREASED [None]
  - DECREASED APPETITE [None]
